FAERS Safety Report 25515213 (Version 2)
Quarter: 2025Q4

REPORT INFORMATION
  Report Type: Spontaneous
  Country: US (occurrence: US)
  Receive Date: 20250703
  Receipt Date: 20251217
  Transmission Date: 20260117
  Serious: No
  Sender: ARDELYX
  Company Number: US-ARDELYX-2025ARDX004127

PATIENT
  Age: 63 Year
  Sex: Female

DRUGS (3)
  1. XPHOZAH [Suspect]
     Active Substance: TENAPANOR HYDROCHLORIDE
     Indication: Hyperphosphataemia
     Dosage: 30 MG, BID
     Route: 048
     Dates: start: 20250501, end: 20250529
  2. XPHOZAH [Suspect]
     Active Substance: TENAPANOR HYDROCHLORIDE
     Dosage: 10 MG, BID
     Route: 048
     Dates: start: 20250529, end: 20250610
  3. TUMS [Concomitant]
     Active Substance: CALCIUM CARBONATE
     Indication: Hyperphosphataemia
     Dosage: 2 TABLETS, TID
     Route: 065

REACTIONS (3)
  - Abdominal discomfort [Unknown]
  - Weight increased [Unknown]
  - Cough [Unknown]

NARRATIVE: CASE EVENT DATE: 20250501
